FAERS Safety Report 4894190-4 (Version None)
Quarter: 2006Q1

REPORT INFORMATION
  Report Type: 
  Country: None (occurrence: None)
  Receive Date: 20060127
  Receipt Date: 20050923
  Transmission Date: 20060701
  Serious: No
  Sender: FDA-Public Use
  Company Number: US-GLAXOSMITHKLINE-A0575775A

PATIENT
  Sex: Male

DRUGS (1)
  1. WELLBUTRIN [Suspect]
     Route: 048

REACTIONS (4)
  - HYPERSENSITIVITY [None]
  - OEDEMA [None]
  - RASH [None]
  - URTICARIA [None]
